FAERS Safety Report 5071779-3 (Version None)
Quarter: 2006Q3

REPORT INFORMATION
  Report Type: 
  Country: None (occurrence: None)
  Receive Date: 20060801
  Receipt Date: 20060719
  Transmission Date: 20061208
  Serious: Yes (Death)
  Sender: FDA-Public Use
  Company Number: MC200600480

PATIENT
  Age: 75 Year
  Sex: Male
  Weight: 76 kg

DRUGS (2)
  1. ANGIOMAX [Suspect]
     Indication: PERCUTANEOUS CORONARY INTERVENTION
     Dosage: 57.7 MG, BOLUS, IV BOLUS; 0.6 MG,  HR, INTRAVENOUS
     Route: 040
     Dates: start: 20060701, end: 20060701
  2. ABCIXIMAB(ABCIXIMAB) SOLUTION (EXCEPT SYRUP) [Suspect]
     Indication: PERCUTANEOUS CORONARY INTERVENTION
     Dosage: 19.25 MG, BOLU, IV BOLUS; 20.6 MG, HR, INTRAVENOUS
     Route: 040
     Dates: start: 20060701, end: 20060701

REACTIONS (19)
  - ABDOMINAL DISTENSION [None]
  - CARDIAC PROCEDURE COMPLICATION [None]
  - CARDIOGENIC SHOCK [None]
  - CORONARY ARTERY DISEASE [None]
  - GASTROINTESTINAL HAEMORRHAGE [None]
  - HAEMATOCRIT DECREASED [None]
  - HAEMOGLOBIN DECREASED [None]
  - HAEMOPTYSIS [None]
  - HAEMORRHAGE [None]
  - HYPOVOLAEMIC SHOCK [None]
  - MEDICAL DEVICE COMPLICATION [None]
  - OLIGURIA [None]
  - PLATELET COUNT DECREASED [None]
  - RESPIRATORY FAILURE [None]
  - THERAPY NON-RESPONDER [None]
  - THROMBOSIS [None]
  - UROGENITAL HAEMORRHAGE [None]
  - VASOCONSTRICTION [None]
  - VENTRICULAR ARRHYTHMIA [None]
